FAERS Safety Report 6378782-1 (Version None)
Quarter: 2009Q3

REPORT INFORMATION
  Report Type: 
  Country: None (occurrence: None)
  Receive Date: 20090928
  Receipt Date: 20090916
  Transmission Date: 20100115
  Serious: Yes (Death, Other)
  Sender: FDA-Public Use
  Company Number: KR-PFIZER INC-2009269995

PATIENT
  Age: 62 Year

DRUGS (10)
  1. VORICONAZOLE [Suspect]
     Indication: ASPERGILLOSIS
     Dosage: 360 MG, 2X/DAY
     Route: 042
     Dates: start: 20090619, end: 20090619
  2. VORICONAZOLE [Suspect]
     Dosage: 200 MG, 2X/DAY
     Route: 042
     Dates: start: 20090620, end: 20090621
  3. ACETYLCYSTEINE [Concomitant]
     Dosage: 3 ML, 3X/DAY
     Route: 042
     Dates: start: 20090613
  4. PANTOPRAZOLE [Concomitant]
     Dosage: 40 MG, 1X/DAY
     Route: 042
     Dates: start: 20090613
  5. IMIPENEM [Concomitant]
     Dosage: 500 MG, 4X/DAY
     Route: 042
     Dates: start: 20090619
  6. VANCOMYCIN [Concomitant]
     Dosage: 1 G, 2X/DAY
     Route: 042
     Dates: start: 20090619
  7. MIDAZOLAM [Concomitant]
     Dosage: 5 MG, 4X/DAY
     Route: 042
     Dates: start: 20090614
  8. BACTRIM [Concomitant]
     Dosage: 4 AMPULES PER DAY
     Route: 042
     Dates: start: 20090614
  9. NOREPINEPHRINE [Concomitant]
     Dosage: UNK
     Route: 041
     Dates: start: 20090620
  10. DOPAMINE [Concomitant]
     Dosage: UNK
     Route: 041
     Dates: start: 20090620

REACTIONS (2)
  - DEATH [None]
  - HEPATIC ENZYME INCREASED [None]
